FAERS Safety Report 11786478 (Version 3)
Quarter: 2015Q4

REPORT INFORMATION
  Report Type: Spontaneous
  Country: JP (occurrence: JP)
  Receive Date: 20151130
  Receipt Date: 20151228
  Transmission Date: 20160305
  Serious: Yes (Other)
  Sender: FDA-Public Use
  Company Number: JP-PFIZER INC-2015394410

PATIENT
  Age: 45 Year
  Sex: Female
  Weight: 81 kg

DRUGS (12)
  1. URSO [Concomitant]
     Active Substance: URSODIOL
     Indication: HEPATIC FUNCTION ABNORMAL
     Dosage: 300 MG, DAILY (DIVIDED INTO 3 TIMES PER DAY)
     Dates: start: 20151027, end: 20151109
  2. CALONAL [Concomitant]
     Active Substance: ACETAMINOPHEN
     Dosage: 600 MG DIVIDED INTO 3 TIMES PER DAY
     Dates: start: 20151027, end: 20151109
  3. METHYCOBAL [Concomitant]
     Active Substance: METHYLCOBALAMIN
     Indication: NEUROPATHY PERIPHERAL
     Dosage: 1500 UG, DAILY (DIVIDED INTO 3 TIMES PER DAY)
     Dates: start: 20151006
  4. DECADRON [Concomitant]
     Active Substance: DEXAMETHASONE
     Dosage: UNK
     Dates: start: 20150714
  5. GRANISETRON /01178102/ [Concomitant]
     Active Substance: GRANISETRON
     Dosage: UNK
     Dates: start: 20150714
  6. CELECOX [Suspect]
     Active Substance: CELECOXIB
     Indication: ARTHRALGIA
  7. TAXOTERE [Concomitant]
     Active Substance: DOCETAXEL
     Dosage: UNK
     Dates: start: 20151006
  8. CELECOX [Suspect]
     Active Substance: CELECOXIB
     Indication: ANALGESIC THERAPY
     Dosage: 200 MG, 2X/DAY
     Route: 048
     Dates: start: 20151027, end: 20151109
  9. FUROSEMIDE. [Concomitant]
     Active Substance: FUROSEMIDE
     Indication: OEDEMA
     Dosage: 20 MG, 1X/DAY
     Dates: start: 20151006
  10. REBAMIPIDE [Concomitant]
     Active Substance: REBAMIPIDE
     Indication: PROPHYLAXIS
     Dosage: 300 MG, DAILY (DIVIDED INTO 3 TIMES PER DAY)
     Dates: start: 20151006, end: 20151116
  11. DEXART [Concomitant]
     Active Substance: DEXAMETHASONE SODIUM PHOSPHATE
     Dosage: UNK
     Dates: start: 20150714
  12. CALONAL [Concomitant]
     Active Substance: ACETAMINOPHEN
     Indication: ARTHRALGIA
     Dosage: 1200 MG, DAILY (DIVIDED INTO 3 TIMES)
     Dates: start: 20151006

REACTIONS (2)
  - Rash maculo-papular [Recovering/Resolving]
  - Off label use [Unknown]

NARRATIVE: CASE EVENT DATE: 20151027
